FAERS Safety Report 8326409-1 (Version None)
Quarter: 2012Q2

REPORT INFORMATION
  Report Type: 
  Country: None (occurrence: None)
  Receive Date: 20120501
  Receipt Date: 20120424
  Transmission Date: 20120825
  Serious: Yes (Disabling, Other)
  Sender: FDA-Public Use
  Company Number: US-MERCK-1202USA00025

PATIENT
  Age: 67 Year

DRUGS (1)
  1. FOSAMAX [Suspect]
     Route: 048
     Dates: end: 20110601

REACTIONS (8)
  - ROAD TRAFFIC ACCIDENT [None]
  - BONE DENSITY DECREASED [None]
  - HYPERCHOLESTEROLAEMIA [None]
  - HYPERTENSION [None]
  - OSTEOPOROSIS [None]
  - MULTIPLE FRACTURES [None]
  - ANKLE FRACTURE [None]
  - SPINAL FRACTURE [None]
